FAERS Safety Report 14859298 (Version 1)
Quarter: 2018Q2

REPORT INFORMATION
  Report Type: Report from Study
  Country: None (occurrence: CA)
  Receive Date: 20180508
  Receipt Date: 20180508
  Transmission Date: 20180711
  Serious: Yes (Hospitalization, Other)
  Sender: FDA-Public Use
  Company Number: CA-ABBVIE-18K-028-2321569-00

PATIENT
  Age: 28 Year
  Sex: Female

DRUGS (1)
  1. HUMIRA [Suspect]
     Active Substance: ADALIMUMAB
     Indication: CROHN^S DISEASE
     Route: 058
     Dates: start: 20170721, end: 201711

REACTIONS (10)
  - Crohn^s disease [Not Recovered/Not Resolved]
  - Gallbladder enlargement [Recovered/Resolved]
  - Cholelithiasis [Recovered/Resolved]
  - Post procedural bile leak [Unknown]
  - Splenomegaly [Unknown]
  - Postoperative wound infection [Not Recovered/Not Resolved]
  - Weight increased [Not Recovered/Not Resolved]
  - Procedural pain [Unknown]
  - Fluid retention [Not Recovered/Not Resolved]
  - Cholecystitis acute [Recovered/Resolved]

NARRATIVE: CASE EVENT DATE: 201710
